FAERS Safety Report 8112352-X (Version None)
Quarter: 2011Q4

REPORT INFORMATION
  Report Type: 
  Country: None (occurrence: None)
  Receive Date: 20111223
  Receipt Date: 20110121
  Transmission Date: 20120403
  Serious: Yes (Hospitalization, Other)
  Sender: FDA-Public Use
  Company Number: PHHY2011US04846

PATIENT
  Age: 16 Year
  Sex: Male

DRUGS (6)
  1. MULTIVITAMINS (ASCORBIC ACID, ERGOCALICFEROL, FOLIC ACID, NICOTINAMIDE [Concomitant]
  2. DEPAKOTE [Concomitant]
  3. DOCUSATE SODIUM [Concomitant]
  4. LEXAPRO [Concomitant]
  5. CLOZARIL [Suspect]
     Dosage: 100 MG, BID
  6. CONCERTA [Concomitant]

REACTIONS (2)
  - HALLUCINATION [None]
  - WHITE BLOOD CELL COUNT DECREASED [None]
